FAERS Safety Report 23529784 (Version 1)
Quarter: 2024Q1

REPORT INFORMATION
  Report Type: Spontaneous
  Country: NZ (occurrence: NZ)
  Receive Date: 20240216
  Receipt Date: 20240216
  Transmission Date: 20240409
  Serious: Yes (Other)
  Sender: FDA-Public Use
  Company Number: NZ-LEO Pharma-367689

PATIENT
  Sex: Male

DRUGS (1)
  1. TACLONEX [Suspect]
     Active Substance: BETAMETHASONE DIPROPIONATE\CALCIPOTRIENE\CALCIPOTRIENE HYDRATE
     Indication: Product used for unknown indication
     Dosage: NO INFORMATION

REACTIONS (3)
  - Cushing^s syndrome [Recovered/Resolved]
  - Acne [Unknown]
  - Swelling face [Unknown]

NARRATIVE: CASE EVENT DATE: 20140101
